FAERS Safety Report 22093906 (Version 1)
Quarter: 2023Q1

REPORT INFORMATION
  Report Type: Spontaneous
  Country: DE (occurrence: DE)
  Receive Date: 20230314
  Receipt Date: 20230314
  Transmission Date: 20230417
  Serious: Yes (Other)
  Sender: FDA-Public Use
  Company Number: DE-ABBVIE-4339296

PATIENT
  Age: 35 Year
  Sex: Male

DRUGS (4)
  1. HUMIRA [Suspect]
     Active Substance: ADALIMUMAB
     Indication: Crohn^s disease
     Dosage: FORM STRENGTH: 40 MG
     Route: 058
     Dates: start: 201409, end: 2019
  2. HUMIRA [Suspect]
     Active Substance: ADALIMUMAB
     Dosage: LAST ADMIN DATE: 2019??FORM STRENGTH: 40 MG
     Route: 058
     Dates: start: 201905
  3. AZATHIOPRINE [Suspect]
     Active Substance: AZATHIOPRINE
     Indication: Crohn^s disease
     Route: 065
     Dates: start: 2010, end: 2016
  4. USTEKINUMAB [Concomitant]
     Active Substance: USTEKINUMAB
     Indication: Product used for unknown indication
     Dosage: 390 MG INTRAVENOUS

REACTIONS (9)
  - Dysplastic naevus [Unknown]
  - Anal stenosis [Unknown]
  - Diarrhoea [Recovering/Resolving]
  - Stoma site infection [Unknown]
  - Rectal stenosis [Unknown]
  - Perirectal abscess [Unknown]
  - Endoscopy small intestine abnormal [Unknown]
  - Prostatic abscess [Unknown]
  - Anal abscess [Unknown]

NARRATIVE: CASE EVENT DATE: 20160101
